FAERS Safety Report 14783150 (Version 1)
Quarter: 2018Q2

REPORT INFORMATION
  Report Type: Report from Study
  Country: CR (occurrence: CR)
  Receive Date: 20180420
  Receipt Date: 20180420
  Transmission Date: 20180711
  Serious: Yes (Death)
  Sender: FDA-Public Use
  Company Number: PHHY2018CR069827

PATIENT
  Sex: Female

DRUGS (1)
  1. EXELON PATCH [Suspect]
     Active Substance: RIVASTIGMINE
     Indication: PRODUCT USED FOR UNKNOWN INDICATION
     Dosage: 13.3 MG, QD PATCH 15 (CM2)
     Route: 062
     Dates: end: 20111001

REACTIONS (1)
  - Death [Fatal]

NARRATIVE: CASE EVENT DATE: 201110
